FAERS Safety Report 7151197-4 (Version None)
Quarter: 2010Q4

REPORT INFORMATION
  Report Type: 
  Country: None (occurrence: None)
  Receive Date: 20101210
  Receipt Date: 20101201
  Transmission Date: 20110411
  Serious: Yes (Other)
  Sender: FDA-Public Use
  Company Number: US-JNJFOC-20100905730

PATIENT
  Sex: Male
  Weight: 104.33 kg

DRUGS (3)
  1. NUCYNTA [Suspect]
     Indication: PAIN
     Route: 048
  2. GABAPENTIN [Concomitant]
     Route: 048
  3. LORAZEPAM [Concomitant]
     Route: 048

REACTIONS (3)
  - AMNESTIC DISORDER [None]
  - DEPRESSION [None]
  - SUICIDE ATTEMPT [None]
